FAERS Safety Report 20592025 (Version 1)
Quarter: 2022Q1

REPORT INFORMATION
  Report Type: Spontaneous
  Country: LU (occurrence: LU)
  Receive Date: 20220314
  Receipt Date: 20220314
  Transmission Date: 20220424
  Serious: Yes (Life-Threatening, Hospitalization, Other)
  Sender: FDA-Public Use
  Company Number: None

PATIENT
  Sex: Male
  Weight: 2 kg

DRUGS (12)
  1. EPIRUBICIN HYDROCHLORIDE [Suspect]
     Active Substance: EPIRUBICIN HYDROCHLORIDE
     Indication: Breast cancer
     Dosage: 75 MG/M2, CYCLIC
     Route: 064
     Dates: start: 20211001, end: 20211001
  2. EPIRUBICIN HYDROCHLORIDE [Suspect]
     Active Substance: EPIRUBICIN HYDROCHLORIDE
     Dosage: 75 MG/M2, CYCLIC
     Route: 064
     Dates: start: 20211028, end: 20211028
  3. EPIRUBICIN HYDROCHLORIDE [Suspect]
     Active Substance: EPIRUBICIN HYDROCHLORIDE
     Dosage: 75 MG/M2, CYCLIC
     Route: 064
     Dates: start: 20211014, end: 20211014
  4. EPIRUBICIN HYDROCHLORIDE [Suspect]
     Active Substance: EPIRUBICIN HYDROCHLORIDE
     Dosage: 75 MG/M2, CYCLIC
     Route: 064
     Dates: start: 20211111, end: 20211111
  5. CYCLOPHOSPHAMIDE [Suspect]
     Active Substance: CYCLOPHOSPHAMIDE
     Indication: Breast cancer
     Route: 064
     Dates: start: 20211001, end: 20211001
  6. CYCLOPHOSPHAMIDE [Suspect]
     Active Substance: CYCLOPHOSPHAMIDE
     Dosage: 750 MG/M2, CYCLIC
     Route: 064
     Dates: start: 20211111, end: 20211111
  7. CYCLOPHOSPHAMIDE [Suspect]
     Active Substance: CYCLOPHOSPHAMIDE
     Dosage: 750 MG/M2, CYCLIC
     Route: 064
     Dates: start: 20211014, end: 20211014
  8. CYCLOPHOSPHAMIDE [Suspect]
     Active Substance: CYCLOPHOSPHAMIDE
     Dosage: 750 MG/M2, CYCLIC
     Route: 064
     Dates: start: 20211028, end: 20211028
  9. TAXOL [Suspect]
     Active Substance: PACLITAXEL
     Indication: Breast cancer
     Dosage: 40 MG/M2, CYCLIC
     Route: 064
     Dates: start: 20211216, end: 20211216
  10. TAXOL [Suspect]
     Active Substance: PACLITAXEL
     Dosage: 40 MG/M2, CYCLIC
     Route: 064
     Dates: start: 20211209, end: 20211209
  11. TAXOL [Suspect]
     Active Substance: PACLITAXEL
     Dosage: 40 MG/M2, CYCLIC
     Route: 064
     Dates: start: 20211202, end: 20211202
  12. TAXOL [Suspect]
     Active Substance: PACLITAXEL
     Dosage: 70 MG/M2, WEEKLY
     Route: 064
     Dates: start: 20211223

REACTIONS (5)
  - Maternal exposure during pregnancy [Unknown]
  - Necrotising enterocolitis neonatal [Recovered/Resolved]
  - Premature baby [Recovering/Resolving]
  - Cerebral haemorrhage neonatal [Unknown]
  - Pneumatosis [Unknown]

NARRATIVE: CASE EVENT DATE: 20220111
